FAERS Safety Report 9212535 (Version 3)
Quarter: 2013Q4

REPORT INFORMATION
  Report Type: Spontaneous
  Country: CA (occurrence: CA)
  Receive Date: 20130405
  Receipt Date: 20131202
  Transmission Date: 20140711
  Serious: Yes (Death, Other)
  Sender: FDA-Public Use
  Company Number: CA-AMGEN-CANSP2013022179

PATIENT
  Age: 82 Year
  Sex: Female

DRUGS (1)
  1. PROLIA [Suspect]
     Indication: OSTEOPOROSIS POSTMENOPAUSAL
     Dosage: 60, UNK
     Route: 065
     Dates: start: 20110404

REACTIONS (8)
  - Death [Fatal]
  - Loss of consciousness [Unknown]
  - Lower limb fracture [Unknown]
  - Gait disturbance [Not Recovered/Not Resolved]
  - Sinusitis [Unknown]
  - Musculoskeletal discomfort [Unknown]
  - Ear disorder [Unknown]
  - Local swelling [Not Recovered/Not Resolved]
